FAERS Safety Report 5482626-X (Version None)
Quarter: 2007Q4

REPORT INFORMATION
  Report Type: 
  Country: None (occurrence: None)
  Receive Date: 20071011
  Receipt Date: 20070822
  Transmission Date: 20080405
  Serious: No
  Sender: FDA-Public Use
  Company Number: A0674700A

PATIENT
  Age: 55 Year
  Sex: Female

DRUGS (4)
  1. TYKERB [Suspect]
     Indication: BREAST CANCER
     Dosage: 1250MG PER DAY
     Route: 048
     Dates: start: 20070818
  2. XELODA [Concomitant]
  3. ANTACID TAB [Concomitant]
  4. PRILOSEC [Concomitant]

REACTIONS (1)
  - NAUSEA [None]
